FAERS Safety Report 7792971-0 (Version None)
Quarter: 2011Q4

REPORT INFORMATION
  Report Type: 
  Country: None (occurrence: None)
  Receive Date: 20111003
  Receipt Date: 20110928
  Transmission Date: 20120403
  Serious: Yes (Death, Hospitalization)
  Sender: FDA-Public Use
  Company Number: PHEH2011US05401

PATIENT
  Sex: Male

DRUGS (1)
  1. NEORAL [Suspect]
     Dosage: 100 MG, BID
     Route: 048

REACTIONS (5)
  - GASTROINTESTINAL CARCINOMA [None]
  - GASTROINTESTINAL HAEMORRHAGE [None]
  - METASTASES TO PANCREAS [None]
  - METASTASES TO KIDNEY [None]
  - METASTASES TO LIVER [None]
